FAERS Safety Report 5753212-9 (Version None)
Quarter: 2008Q2

REPORT INFORMATION
  Report Type: 
  Country: None (occurrence: None)
  Receive Date: 20080530
  Receipt Date: 20080103
  Transmission Date: 20081010
  Serious: No
  Sender: FDA-Public Use
  Company Number: US-KINGPHARMUSA00001-K200800012

PATIENT

DRUGS (2)
  1. CORTISPORIN [Suspect]
     Indication: SCLERODERMA
     Dosage: UNK, TWICE
     Route: 031
     Dates: start: 20080101, end: 20080102
  2. SOLU-MEDROL [Concomitant]
     Indication: RESPIRATORY DISORDER
     Route: 042

REACTIONS (2)
  - INCORRECT ROUTE OF DRUG ADMINISTRATION [None]
  - NO ADVERSE EVENT [None]
